FAERS Safety Report 6832930-5 (Version None)
Quarter: 2010Q3

REPORT INFORMATION
  Report Type: 
  Country: None (occurrence: None)
  Receive Date: 20100712
  Receipt Date: 20070322
  Transmission Date: 20110219
  Serious: No
  Sender: FDA-Public Use
  Company Number: US-PFIZER INC-2007024984

PATIENT
  Sex: Female
  Weight: 58.97 kg

DRUGS (6)
  1. CHANTIX [Suspect]
     Indication: SMOKING CESSATION THERAPY
     Dates: start: 20061101
  2. SPIRIVA [Suspect]
  3. PENICILLIN [Suspect]
  4. NICOTINE [Suspect]
     Indication: SMOKING CESSATION THERAPY
  5. CIPROFLOXACIN [Suspect]
     Dates: start: 20061101
  6. ACIPHEX [Concomitant]
     Indication: GASTROOESOPHAGEAL REFLUX DISEASE

REACTIONS (9)
  - ASTHENIA [None]
  - BLOOD PRESSURE INCREASED [None]
  - DIZZINESS [None]
  - DYSPNOEA [None]
  - HEADACHE [None]
  - INFECTION [None]
  - MALAISE [None]
  - MIDDLE INSOMNIA [None]
  - SLEEP TERROR [None]
